FAERS Safety Report 20172247 (Version 1)
Quarter: 2021Q4

REPORT INFORMATION
  Report Type: Spontaneous
  Country: US (occurrence: US)
  Receive Date: 20211210
  Receipt Date: 20211210
  Transmission Date: 20220303
  Serious: No
  Sender: FDA-Public Use
  Company Number: US-NOVOPROD-838323

PATIENT
  Sex: Male

DRUGS (2)
  1. LEVEMIR [Suspect]
     Active Substance: INSULIN DETEMIR
     Indication: Product used for unknown indication
     Dosage: 30 IN THE MORNING/30 IN THE EVENING.
     Route: 058
     Dates: start: 2011
  2. HUMALOG HD KWIKPEN [Concomitant]
     Indication: Product used for unknown indication
     Dosage: SLIDING SCALE OF 20 UNITS AS NEEDED.
     Route: 058
     Dates: start: 2011

REACTIONS (1)
  - Visual impairment [Unknown]
